FAERS Safety Report 4982193-0 (Version None)
Quarter: 2006Q2

REPORT INFORMATION
  Report Type: 
  Country: None (occurrence: None)
  Receive Date: 20060425
  Receipt Date: 20050112
  Transmission Date: 20061013
  Serious: Yes (Death, Hospitalization, Other)
  Sender: FDA-Public Use
  Company Number: US-MERCK-0501USA01829

PATIENT
  Age: 74 Year
  Sex: Female
  Weight: 59 kg

DRUGS (2)
  1. VIOXX [Suspect]
     Indication: ARTHRALGIA
     Route: 048
     Dates: start: 19990101, end: 20010823
  2. VIOXX [Suspect]
     Indication: OSTEOARTHRITIS
     Route: 048
     Dates: start: 19990101, end: 20010823

REACTIONS (12)
  - BACK PAIN [None]
  - BLOOD PRESSURE ABNORMAL [None]
  - CATHETER SITE INFECTION [None]
  - DEATH [None]
  - DRUG INEFFECTIVE [None]
  - GASTROINTESTINAL HAEMORRHAGE [None]
  - HYPERTONIC BLADDER [None]
  - INCONTINENCE [None]
  - MYOCARDIAL INFARCTION [None]
  - OVERDOSE [None]
  - PRURITUS GENERALISED [None]
  - UROSEPSIS [None]
